FAERS Safety Report 10745997 (Version 1)
Quarter: 2015Q1

REPORT INFORMATION
  Report Type: Spontaneous
  Country: DE (occurrence: DE)
  Receive Date: 20150128
  Receipt Date: 20150128
  Transmission Date: 20150721
  Serious: Yes (Congenital Anomaly, Other)
  Sender: FDA-Public Use
  Company Number: DE-MYLANLABS-2015M1001705

PATIENT

DRUGS (12)
  1. INFLIXIMAB [Concomitant]
     Active Substance: INFLIXIMAB
     Dosage: IN TRIMESTER 3
     Route: 064
  2. FLUTICASONE PROPIONATE. [Concomitant]
     Active Substance: FLUTICASONE PROPIONATE
     Dosage: IN TRIMESTER
     Route: 064
  3. ONDANSETRON [Concomitant]
     Active Substance: ONDANSETRON
     Dosage: IN TRIMESTER
     Route: 064
  4. INFLUENZA VIRUS VACCINE [Concomitant]
     Active Substance: INFLUENZA VIRUS VACCINE
     Dosage: IN TRIMESTER
     Route: 064
  5. PREDNISOLONE. [Concomitant]
     Active Substance: PREDNISOLONE
     Dosage: IN TRIMESTER 3
     Route: 064
  6. PARACETAMOL [Concomitant]
     Active Substance: ACETAMINOPHEN
     Dosage: IN TRIMESTER
     Route: 064
  7. DEXTROPROPOXYPHENE [Concomitant]
     Active Substance: PROPOXYPHENE HYDROCHLORIDE
     Dosage: IN TRIMESTER
     Route: 064
  8. ADALIMUMAB [Concomitant]
     Active Substance: ADALIMUMAB
     Dosage: IN TRIMESTERS 2 AND 3
     Route: 064
  9. METHYLPREDNISOLONE. [Concomitant]
     Active Substance: METHYLPREDNISOLONE
     Dosage: IN TRIMESTERS 1-3
     Route: 064
  10. CHLORPHENAMINE [Concomitant]
     Active Substance: CHLORPHENIRAMINE MALEATE
     Dosage: IN TRIMESTER
     Route: 064
  11. HYDROCODONE [Concomitant]
     Active Substance: HYDROCODONE
     Dosage: IN TRIMESTER
     Route: 064
  12. METHOTREXATE [Suspect]
     Active Substance: METHOTREXATE
     Dosage: 7.5 MG/WEEK UP TO 6 DAYS AFTER LMP
     Route: 064

REACTIONS (3)
  - Foetal exposure during pregnancy [Unknown]
  - Pulmonary valve stenosis congenital [Unknown]
  - Atrial septal defect [Unknown]
